FAERS Safety Report 7795575-9 (Version None)
Quarter: 2011Q4

REPORT INFORMATION
  Report Type: 
  Country: None (occurrence: None)
  Receive Date: 20111004
  Receipt Date: 20110930
  Transmission Date: 20120403
  Serious: Yes (Hospitalization)
  Sender: FDA-Public Use
  Company Number: US-GLAXOSMITHKLINE-A0883919A

PATIENT
  Age: 53 Year
  Sex: Male

DRUGS (11)
  1. GLIPIZIDE [Concomitant]
  2. GLUCOTROL [Concomitant]
  3. AVANDIA [Suspect]
     Indication: DIABETES MELLITUS
     Dosage: 8MG PER DAY
     Route: 048
     Dates: end: 20070301
  4. METFORMIN HCL [Concomitant]
  5. PREDNISONE [Concomitant]
  6. FLONASE [Concomitant]
  7. TOPROL-XL [Concomitant]
  8. ALLOPURINOL [Concomitant]
  9. ZOLOFT [Concomitant]
  10. NEURONTIN [Concomitant]
  11. PLETAL [Concomitant]

REACTIONS (2)
  - MYOCARDIAL INFARCTION [None]
  - CARDIAC OPERATION [None]
